FAERS Safety Report 24818703 (Version 1)
Quarter: 2025Q1

REPORT INFORMATION
  Report Type: Spontaneous
  Country: US (occurrence: None)
  Receive Date: 20250107
  Receipt Date: 20250107
  Transmission Date: 20250409
  Serious: No
  Sender: FDA-CTU
  Company Number: None

PATIENT
  Age: 79 Year
  Sex: Male
  Weight: 80.29 kg

DRUGS (1)
  1. PRALUENT [Suspect]
     Active Substance: ALIROCUMAB
     Indication: Hyperlipidaemia
     Dosage: 75 MG (1 ML) EVERY 2 WEEKS SUBCUTANEOUS
     Route: 058
     Dates: start: 20230929

REACTIONS (1)
  - Death [None]

NARRATIVE: CASE EVENT DATE: 20250106
